FAERS Safety Report 20278038 (Version 2)
Quarter: 2022Q1

REPORT INFORMATION
  Report Type: Spontaneous
  Country: BR (occurrence: BR)
  Receive Date: 20220103
  Receipt Date: 20220110
  Transmission Date: 20220423
  Serious: Yes (Other)
  Sender: FDA-Public Use
  Company Number: BR-PFIZER INC-202101843208

PATIENT
  Age: 39 Year
  Sex: Female

DRUGS (3)
  1. ENBREL [Suspect]
     Active Substance: ETANERCEPT
     Indication: Arthritis
     Dosage: UNK
     Route: 065
     Dates: start: 202105, end: 202107
  2. ENBREL [Suspect]
     Active Substance: ETANERCEPT
     Indication: Rheumatoid arthritis
     Dosage: UNK
     Route: 065
  3. ENBREL [Suspect]
     Active Substance: ETANERCEPT
     Indication: Psoriatic arthropathy
     Dosage: UNK
     Route: 065

REACTIONS (8)
  - Ear injury [Unknown]
  - Hypoacusis [Unknown]
  - Weight decreased [Unknown]
  - Psoriatic arthropathy [Unknown]
  - Alopecia [Unknown]
  - Pain [Unknown]
  - Arthralgia [Unknown]
  - Psoriasis [Unknown]

NARRATIVE: CASE EVENT DATE: 20210701
